FAERS Safety Report 6331234-7 (Version None)
Quarter: 2009Q3

REPORT INFORMATION
  Report Type: 
  Country: None (occurrence: None)
  Receive Date: 20090827
  Receipt Date: 20090820
  Transmission Date: 20100115
  Serious: Yes (Death)
  Sender: FDA-Public Use
  Company Number: US-MERCK-0908USA03442

PATIENT

DRUGS (1)
  1. PRIMAXIN [Suspect]
     Indication: PSEUDOMONAS INFECTION
     Route: 065
     Dates: start: 20070101

REACTIONS (2)
  - BACTERAEMIA [None]
  - DEATH [None]
